FAERS Safety Report 6425257-7 (Version None)
Quarter: 2009Q4

REPORT INFORMATION
  Report Type: 
  Country: None (occurrence: None)
  Receive Date: 20091030
  Receipt Date: 20091030
  Transmission Date: 20100525
  Serious: No
  Sender: FDA-Public Use
  Company Number: None

PATIENT
  Age: 53 Year
  Sex: Female
  Weight: 97.977 kg

DRUGS (1)
  1. CRESTOR [Suspect]
     Indication: BLOOD CHOLESTEROL INCREASED
     Dosage: 10 MG ONCE DAILY PO
     Route: 048
     Dates: start: 20090714, end: 20090822

REACTIONS (3)
  - ASTHENIA [None]
  - CHROMATURIA [None]
  - CONSTIPATION [None]
